FAERS Safety Report 19349819 (Version 1)
Quarter: 2021Q2

REPORT INFORMATION
  Report Type: Spontaneous
  Country: CH (occurrence: CH)
  Receive Date: 20210531
  Receipt Date: 20210531
  Transmission Date: 20210717
  Serious: Yes (Hospitalization)
  Sender: FDA-Public Use
  Company Number: CH-TEVA-2021-CH-1916014

PATIENT
  Age: 76 Year
  Sex: Male

DRUGS (9)
  1. CARBOPLATIN TEVA [Suspect]
     Active Substance: CARBOPLATIN
     Dosage: INGREDIENT (CARBOPLATIN): 150MG , UNIT DOSE : 300 MG
     Route: 042
     Dates: start: 20210329, end: 20210329
  2. ETOPOPHOS [Suspect]
     Active Substance: ETOPOSIDE PHOSPHATE
     Route: 042
     Dates: start: 20210329, end: 20210331
  3. TECENTRIQ [Suspect]
     Active Substance: ATEZOLIZUMAB
     Route: 065
  4. CONCOR [Concomitant]
     Active Substance: BISOPROLOL FUMARATE
     Dosage: 2.5 MILLIGRAM DAILY;
  5. LERCANIDIPIN SANDOZ [Concomitant]
     Active Substance: LERCANIDIPINE HYDROCHLORIDE
     Dosage: 5 MILLIGRAM DAILY; 5 MG
     Route: 048
  6. COMIRNATY [Suspect]
     Active Substance: TOZINAMERAN
     Dosage: FIRST DOSE. , 1 DF
     Route: 030
     Dates: start: 20210323, end: 20210323
  7. COMIRNATY [Suspect]
     Active Substance: TOZINAMERAN
     Dosage: SECOND DOSE. , 1 DF
     Route: 030
     Dates: start: 20210424, end: 20210424
  8. COSAAR FORTE [Concomitant]
     Active Substance: LOSARTAN POTASSIUM
     Dosage: 100 MILLIGRAM DAILY; INGREDIENT (LOSARTAN POTASSIUM): 100MG;
  9. ZYLORIC [Concomitant]
     Active Substance: ALLOPURINOL
     Dosage: 150 MILLIGRAM DAILY; 150 MG
     Route: 048

REACTIONS (3)
  - Troponin increased [Recovering/Resolving]
  - Liver disorder [Recovering/Resolving]
  - Myositis [Recovering/Resolving]

NARRATIVE: CASE EVENT DATE: 20210504
